FAERS Safety Report 7283536-8 (Version None)
Quarter: 2011Q1

REPORT INFORMATION
  Report Type: 
  Country: None (occurrence: None)
  Receive Date: 20110209
  Receipt Date: 20110131
  Transmission Date: 20110831
  Serious: Yes (Hospitalization, Disabling)
  Sender: FDA-Public Use
  Company Number: PHHO2010FR17602

PATIENT
  Sex: Male
  Weight: 68 kg

DRUGS (2)
  1. IMATINIB [Suspect]
     Indication: CHRONIC MYELOID LEUKAEMIA
     Dosage: 600MG/D
     Route: 048
     Dates: start: 20050530, end: 20100112
  2. IMATINIB [Suspect]
     Dosage: 400MG/D
     Dates: start: 20100113, end: 20100429

REACTIONS (5)
  - MUSCULAR WEAKNESS [None]
  - INCLUSION BODY MYOSITIS [None]
  - GAIT DISTURBANCE [None]
  - BALANCE DISORDER [None]
  - DYSPHAGIA [None]
